FAERS Safety Report 25445147 (Version 1)
Quarter: 2025Q2

REPORT INFORMATION
  Report Type: Spontaneous
  Country: CA (occurrence: None)
  Receive Date: 20250616
  Receipt Date: 20250616
  Transmission Date: 20250716
  Serious: Yes (Disabling)
  Sender: FDA-CTU
  Company Number: None

PATIENT
  Age: 32 Year
  Sex: Male
  Weight: 67.5 kg

DRUGS (1)
  1. MOUNJARO [Suspect]
     Active Substance: TIRZEPATIDE

REACTIONS (9)
  - Panic attack [None]
  - Anxiety [None]
  - Tremor [None]
  - Brain fog [None]
  - Insomnia [None]
  - Headache [None]
  - Memory impairment [None]
  - Depression [None]
  - Cognitive disorder [None]

NARRATIVE: CASE EVENT DATE: 20250407
